FAERS Safety Report 8301369-8 (Version None)
Quarter: 2012Q2

REPORT INFORMATION
  Report Type: 
  Country: None (occurrence: None)
  Receive Date: 20120420
  Receipt Date: 20120417
  Transmission Date: 20120825
  Serious: Yes (Hospitalization)
  Sender: FDA-Public Use
  Company Number: CA-ABBOTT-12P-028-0919332-00

PATIENT
  Age: 82 Year

DRUGS (8)
  1. AMLODIPINE [Concomitant]
     Indication: HYPERTENSION
  2. ALFUZOSIN HCL [Concomitant]
     Indication: URINE FLOW DECREASED
  3. MICARDIS [Concomitant]
     Indication: HYPERTENSION
  4. LUPRON DEPOT [Suspect]
     Indication: PROSTATE CANCER
     Dosage: NOVEMBER DOSE
     Route: 030
  5. HYDROCHLOROTHIAZIDE [Concomitant]
     Indication: HYPERTENSION
  6. RABEPRAZOLE SODIUM [Concomitant]
     Indication: GASTROOESOPHAGEAL REFLUX DISEASE
  7. LUPRON DEPOT [Suspect]
     Dosage: FEBRUARY DOSE
     Route: 030
  8. EZETIMIBE [Concomitant]
     Indication: BLOOD CHOLESTEROL INCREASED

REACTIONS (4)
  - DYSPNOEA [None]
  - ATRIAL FIBRILLATION [None]
  - ANXIETY [None]
  - CARDIAC FAILURE [None]
